FAERS Safety Report 9341304 (Version 1)
Quarter: 2013Q2

REPORT INFORMATION
  Report Type: Report from Study
  Country: AU (occurrence: AU)
  Receive Date: 20130611
  Receipt Date: 20130611
  Transmission Date: 20140414
  Serious: Yes (Disabling, Other)
  Sender: FDA-Public Use
  Company Number: AU-ROCHE-1233290

PATIENT
  Age: 76 Year
  Sex: Male

DRUGS (1)
  1. ACTEMRA [Suspect]
     Indication: RHEUMATOID ARTHRITIS
     Route: 042
     Dates: start: 20100908

REACTIONS (5)
  - Procedural complication [Recovered/Resolved]
  - General physical health deterioration [Not Recovered/Not Resolved]
  - Disorientation [Unknown]
  - Anxiety [Unknown]
  - Mental impairment [Not Recovered/Not Resolved]
